FAERS Safety Report 6300177-7 (Version None)
Quarter: 2009Q3

REPORT INFORMATION
  Report Type: 
  Country: None (occurrence: None)
  Receive Date: 20090806
  Receipt Date: 20090727
  Transmission Date: 20100115
  Serious: Yes (Other)
  Sender: FDA-Public Use
  Company Number: US-ELI_LILLY_AND_COMPANY-US200907006254

PATIENT
  Sex: Male

DRUGS (1)
  1. CIALIS [Suspect]
     Dosage: UNK, DAILY (1/D)
     Route: 065
     Dates: start: 20090201, end: 20090701

REACTIONS (5)
  - DIARRHOEA [None]
  - FEEDING DISORDER [None]
  - GASTRIC DISORDER [None]
  - RECTAL HAEMORRHAGE [None]
  - WEIGHT DECREASED [None]
